FAERS Safety Report 8770528 (Version 3)
Quarter: 2013Q1

REPORT INFORMATION
  Report Type: Report from Study
  Country: JP (occurrence: JP)
  Receive Date: 20120906
  Receipt Date: 20130227
  Transmission Date: 20140127
  Serious: Yes (Other)
  Sender: FDA-Public Use
  Company Number: JP-009507513-1208JPN001994

PATIENT
  Age: 64 Year
  Sex: Male
  Weight: 58 kg

DRUGS (12)
  1. PEGINTRON [Suspect]
     Indication: HEPATITIS C
     Dosage: 1.3 MICROGRAM PER KILOGRAM, QW
     Route: 058
     Dates: start: 20120420, end: 20120423
  2. PEGINTRON [Suspect]
     Dosage: 1.3 MICROGRAM PER KILOGRAM, QW
     Route: 058
     Dates: start: 20120508, end: 20121019
  3. REBETOL [Suspect]
     Indication: HEPATITIS C
     Dosage: 600 MG, QD
     Route: 048
     Dates: start: 20120420, end: 20120423
  4. REBETOL [Suspect]
     Dosage: 600 MG, QD
     Route: 048
     Dates: start: 20120508, end: 20120525
  5. REBETOL [Suspect]
     Dosage: 200 MG, QD
     Route: 048
     Dates: start: 20120526, end: 20120614
  6. REBETOL [Suspect]
     Dosage: 400 MG, QD
     Route: 048
     Dates: start: 20120615, end: 20121020
  7. TELAVIC [Suspect]
     Indication: HEPATITIS C
     Dosage: 2.25 G, QD
     Route: 048
     Dates: start: 20120420, end: 20120423
  8. TELAVIC [Suspect]
     Dosage: 1.5 G, QD
     Route: 048
     Dates: start: 20120508, end: 20120726
  9. RESTAMIN [Concomitant]
     Indication: HEPATITIS C
     Dosage: AS NEEDED
     Route: 061
     Dates: start: 20120423
  10. LOXONIN [Concomitant]
     Indication: HEPATITIS C
     Dosage: AS NEEDED
     Route: 048
     Dates: start: 20120515
  11. SELBEX [Concomitant]
     Indication: HEPATITIS C
     Dosage: AS NEEDED
     Route: 048
     Dates: start: 20120515
  12. [COMPOSITION UNSPECIFIED] [Concomitant]
     Indication: HEPATITIS C
     Dosage: UNK, PRN
     Route: 048
     Dates: start: 20120708

REACTIONS (2)
  - Renal impairment [Recovering/Resolving]
  - Anaemia [Recovering/Resolving]
